FAERS Safety Report 5043551-1 (Version None)
Quarter: 2006Q2

REPORT INFORMATION
  Report Type: 
  Country: None (occurrence: None)
  Receive Date: 20060601
  Receipt Date: 20060222
  Transmission Date: 20061013
  Serious: No
  Sender: FDA-Public Use
  Company Number: 2006PV009126

PATIENT
  Age: 49 Year
  Sex: Male
  Weight: 113.8529 kg

DRUGS (6)
  1. BYETTA [Suspect]
     Indication: DIABETES MELLITUS NON-INSULIN-DEPENDENT
     Dosage: SEE IMAGE
     Route: 058
     Dates: start: 20050801, end: 20050901
  2. BYETTA [Suspect]
     Indication: DIABETES MELLITUS NON-INSULIN-DEPENDENT
     Dosage: SEE IMAGE
     Route: 058
     Dates: start: 20050901
  3. HUMALOG [Concomitant]
  4. HUMULIN 70/30 [Concomitant]
  5. GLUCOPHAGE [Concomitant]
  6. STARLIX [Concomitant]

REACTIONS (7)
  - DECREASED APPETITE [None]
  - ENERGY INCREASED [None]
  - GASTROENTERITIS VIRAL [None]
  - NAUSEA [None]
  - RASH PRURITIC [None]
  - VOMITING [None]
  - WEIGHT DECREASED [None]
